FAERS Safety Report 7496465-1 (Version None)
Quarter: 2011Q2

REPORT INFORMATION
  Report Type: 
  Country: None (occurrence: None)
  Receive Date: 20110523
  Receipt Date: 20110512
  Transmission Date: 20111010
  Serious: Yes (Hospitalization)
  Sender: FDA-Public Use
  Company Number: US-BAXTER-2011BH014939

PATIENT
  Age: 70 Year
  Sex: Male

DRUGS (2)
  1. DIANEAL [Suspect]
     Route: 033
     Dates: start: 20110501
  2. DIANEAL [Suspect]
     Indication: PERITONEAL DIALYSIS
     Route: 033
     Dates: start: 20110101, end: 20110501

REACTIONS (5)
  - ATRIAL FIBRILLATION [None]
  - FALL [None]
  - ABASIA [None]
  - BLOOD POTASSIUM INCREASED [None]
  - ASTHENIA [None]
